FAERS Safety Report 8625127-X (Version None)
Quarter: 2012Q3

REPORT INFORMATION
  Report Type: 
  Country: None (occurrence: None)
  Receive Date: 20120827
  Receipt Date: 20120814
  Transmission Date: 20120928
  Serious: Yes (Hospitalization, Congenital Anomaly)
  Sender: FDA-Public Use
  Company Number: US-GLAXOSMITHKLINE-A0991004A

PATIENT
  Sex: Male

DRUGS (2)
  1. MULTI-VITAMINS [Concomitant]
     Route: 064
  2. PAXIL [Suspect]
     Indication: ANXIETY
     Route: 064

REACTIONS (3)
  - RHABDOMYOMA [None]
  - TACHYARRHYTHMIA [None]
  - FOETAL EXPOSURE DURING PREGNANCY [None]
